FAERS Safety Report 23041973 (Version 3)
Quarter: 2023Q4

REPORT INFORMATION
  Report Type: Report from Study
  Country: None (occurrence: CN)
  Receive Date: 20231007
  Receipt Date: 20231124
  Transmission Date: 20240110
  Serious: Yes (Hospitalization)
  Sender: FDA-Public Use
  Company Number: CN-Jiangsu Hengrui Medicine Co., Ltd.-2146810

PATIENT
  Age: 49 Year
  Sex: Female
  Weight: 61 kg

DRUGS (18)
  1. DOCETAXEL [Suspect]
     Active Substance: DOCETAXEL\DOCETAXEL ANHYDROUS
     Indication: HER2 positive breast cancer
     Route: 041
     Dates: start: 20230420, end: 20230420
  2. PERTUZUMAB [Suspect]
     Active Substance: PERTUZUMAB
     Route: 041
     Dates: start: 20230420, end: 20230420
  3. TRASTUZUMAB [Suspect]
     Active Substance: TRASTUZUMAB
     Route: 041
     Dates: start: 20230420, end: 20230420
  4. Digestive Enzyme Tablets [Concomitant]
     Route: 048
     Dates: start: 20230423, end: 20230506
  5. Weisu Granules [Concomitant]
     Route: 048
     Dates: start: 20230423, end: 20230504
  6. Promethazine Injection [Concomitant]
     Route: 030
     Dates: start: 20230420, end: 20230420
  7. DEXAMETHASONE [Concomitant]
     Active Substance: DEXAMETHASONE
     Route: 042
     Dates: start: 20230420, end: 20230420
  8. Dolasetron Injection [Concomitant]
     Route: 041
     Dates: start: 20230420, end: 20230423
  9. METHYLCOBALAMIN [Concomitant]
     Active Substance: METHYLCOBALAMIN
     Route: 048
     Dates: start: 20230419, end: 20230423
  10. Adenosylcobalamin Injection [Concomitant]
     Route: 041
     Dates: start: 20230420
  11. Aluminum Magnesium Suspension [Concomitant]
     Route: 048
     Dates: start: 20230419, end: 20230423
  12. Rabeprazole Sodium Injection [Concomitant]
     Route: 041
     Dates: start: 20230420, end: 20230420
  13. Invert Sugar Injection [Concomitant]
     Route: 041
     Dates: start: 20230420, end: 20230423
  14. Fructose Injection [Concomitant]
     Route: 041
     Dates: start: 20230420, end: 20230423
  15. Salmon Calcitonin Injection [Concomitant]
     Route: 030
     Dates: start: 20230420, end: 20230423
  16. ESTAZOLAM [Concomitant]
     Active Substance: ESTAZOLAM
     Route: 048
     Dates: start: 20230421, end: 20230421
  17. MECAPEGFILGRASTIM [Concomitant]
     Active Substance: MECAPEGFILGRASTIM
     Route: 058
     Dates: start: 20230423, end: 20230423
  18. APREPITANT [Concomitant]
     Active Substance: APREPITANT
     Route: 048
     Dates: start: 20230420, end: 20230420

REACTIONS (5)
  - Alanine aminotransferase increased [Recovered/Resolved]
  - Gamma-glutamyltransferase increased [Recovered/Resolved]
  - Blood lactate dehydrogenase increased [Recovered/Resolved]
  - Aspartate aminotransferase increased [Recovered/Resolved]
  - Blood alkaline phosphatase increased [Recovered/Resolved]

NARRATIVE: CASE EVENT DATE: 20230428
